FAERS Safety Report 18481025 (Version 1)
Quarter: 2020Q4

REPORT INFORMATION
  Report Type: Spontaneous
  Country: RU (occurrence: RU)
  Receive Date: 20201109
  Receipt Date: 20201109
  Transmission Date: 20210114
  Serious: Yes (Other)
  Sender: FDA-Public Use
  Company Number: RU-SA-2020SA310732

PATIENT

DRUGS (4)
  1. APIDRA SOLOSTAR [Suspect]
     Active Substance: INSULIN GLULISINE
     Indication: TYPE 2 DIABETES MELLITUS
     Dosage: 8 IU, TID
     Route: 058
     Dates: end: 202010
  2. APIDRA SOLOSTAR [Suspect]
     Active Substance: INSULIN GLULISINE
     Dosage: 6 IU, TID
     Route: 058
     Dates: start: 202010
  3. PROTAPHANE [Suspect]
     Active Substance: INSULIN HUMAN
     Indication: TYPE 2 DIABETES MELLITUS
     Dosage: UNKNOWN
     Route: 058
     Dates: end: 202010
  4. PROTAPHANE [Suspect]
     Active Substance: INSULIN HUMAN
     Dosage: UNKNOWN
     Route: 058
     Dates: start: 202010

REACTIONS (2)
  - Pancreatitis [Not Recovered/Not Resolved]
  - Diet noncompliance [Not Recovered/Not Resolved]

NARRATIVE: CASE EVENT DATE: 202010
